FAERS Safety Report 14297413 (Version 1)
Quarter: 2017Q4

REPORT INFORMATION
  Report Type: Spontaneous
  Country: US (occurrence: US)
  Receive Date: 20171218
  Receipt Date: 20171218
  Transmission Date: 20180321
  Serious: No
  Sender: FDA-Public Use
  Company Number: US-ASTRAZENECA-2017SF26187

PATIENT
  Sex: Female
  Weight: 54.4 kg

DRUGS (2)
  1. SYMBICORT [Suspect]
     Active Substance: BUDESONIDE\FORMOTEROL FUMARATE DIHYDRATE
     Indication: ASTHMA
     Dosage: 160-4.5 MCG, OFF LABEL, 2 PUFFS IN MORNING AND 1 PUFF IN EARLY EVENING
     Route: 055
  2. SYMBICORT [Suspect]
     Active Substance: BUDESONIDE\FORMOTEROL FUMARATE DIHYDRATE
     Indication: CHRONIC OBSTRUCTIVE PULMONARY DISEASE
     Dosage: 160-4.5 MCG, OFF LABEL, 2 PUFFS IN MORNING AND 1 PUFF IN EARLY EVENING
     Route: 055

REACTIONS (10)
  - Asthma [Recovering/Resolving]
  - Off label use [Unknown]
  - Drug dose omission [Not Recovered/Not Resolved]
  - Dyspnoea [Recovering/Resolving]
  - Cough [Recovering/Resolving]
  - Product quality issue [Unknown]
  - Malaise [Recovering/Resolving]
  - Intentional product misuse [Not Recovered/Not Resolved]
  - Wrong technique in product usage process [Not Recovered/Not Resolved]
  - Insurance issue [Unknown]
